FAERS Safety Report 20053154 (Version 2)
Quarter: 2021Q4

REPORT INFORMATION
  Report Type: Spontaneous
  Country: US (occurrence: US)
  Receive Date: 20211110
  Receipt Date: 20211117
  Transmission Date: 20220303
  Serious: No
  Sender: FDA-Public Use
  Company Number: US-ALKERMES INC.-ALK-2021-005730

PATIENT
  Sex: Male

DRUGS (3)
  1. VIVITROL [Suspect]
     Active Substance: NALTREXONE
     Indication: Alcoholism
     Dosage: 380 MILLIGRAM, QMO
     Route: 030
     Dates: start: 20211020
  2. VIVITROL [Suspect]
     Active Substance: NALTREXONE
     Dosage: 380 MILLIGRAM, QMO
     Route: 030
     Dates: start: 201009, end: 201009
  3. GUAIFENESIN [Concomitant]
     Active Substance: GUAIFENESIN
     Indication: Prophylaxis
     Dosage: UNK
     Route: 065

REACTIONS (7)
  - Incorrect route of product administration [Unknown]
  - Alcoholism [Unknown]
  - Injection site reaction [Unknown]
  - Injection site pain [Recovering/Resolving]
  - Injection site swelling [Unknown]
  - Injection site induration [Unknown]
  - Injection site erythema [Recovering/Resolving]

NARRATIVE: CASE EVENT DATE: 20210101
